FAERS Safety Report 6024042-8 (Version None)
Quarter: 2008Q4

REPORT INFORMATION
  Report Type: 
  Country: None (occurrence: None)
  Receive Date: 20081230
  Receipt Date: 20081222
  Transmission Date: 20090506
  Serious: Yes (Hospitalization)
  Sender: FDA-Public Use
  Company Number: NL-GENENTECH-274374

PATIENT
  Sex: Female
  Weight: 118 kg

DRUGS (2)
  1. APOMAB (PRO95780) [Suspect]
     Indication: B-CELL LYMPHOMA
     Dosage: 15 MG/KG, UNK
     Route: 042
     Dates: start: 20081219
  2. RITUXAN [Suspect]
     Indication: NON-HODGKIN'S LYMPHOMA
     Dosage: UNK
     Route: 042
     Dates: start: 20081217

REACTIONS (1)
  - HYPERSENSITIVITY [None]
